FAERS Safety Report 5520381-5 (Version None)
Quarter: 2007Q4

REPORT INFORMATION
  Report Type: 
  Country: None (occurrence: None)
  Receive Date: 20071116
  Receipt Date: 20071116
  Transmission Date: 20080405
  Serious: Yes (Other)
  Sender: FDA-Public Use
  Company Number: None

PATIENT
  Age: 30 Year
  Sex: Male
  Weight: 90.7194 kg

DRUGS (2)
  1. AMOXICILLIN AND CLAVULANATE POTASSIUM [Suspect]
     Indication: TONSILLITIS
     Dosage: #20 BID PO
     Route: 048
     Dates: start: 20070709
  2. CLINDAMYCIN HCL [Suspect]
     Indication: INFECTIOUS MONONUCLEOSIS
     Dosage: #40 QID PO
     Route: 048
     Dates: start: 20070713, end: 20070716

REACTIONS (4)
  - DRUG INEFFECTIVE [None]
  - PAIN OF SKIN [None]
  - RASH [None]
  - SKIN BURNING SENSATION [None]
